FAERS Safety Report 5069502-1 (Version None)
Quarter: 2006Q3

REPORT INFORMATION
  Report Type: 
  Country: None (occurrence: None)
  Receive Date: 20060801
  Receipt Date: 20060801
  Transmission Date: 20061208
  Serious: Yes (Life-Threatening)
  Sender: FDA-Public Use
  Company Number: None

PATIENT
  Age: 65 Year
  Sex: Female
  Weight: 56.246 kg

DRUGS (1)
  1. AMBIEN [Suspect]
     Indication: RESTLESS LEGS SYNDROME
     Dosage: ONE BY MOUTH BEDTIME PO
     Route: 048
     Dates: start: 20060726, end: 20060727

REACTIONS (2)
  - ABNORMAL SLEEP-RELATED EVENT [None]
  - AMNESIA [None]
